FAERS Safety Report 8479929-3 (Version None)
Quarter: 2012Q2

REPORT INFORMATION
  Report Type: 
  Country: None (occurrence: None)
  Receive Date: 20120629
  Receipt Date: 20120618
  Transmission Date: 20120825
  Serious: Yes (Life-Threatening, Hospitalization)
  Sender: FDA-Public Use
  Company Number: PL-MYLANLABS-2012S1012824

PATIENT
  Age: 23 Year
  Sex: Female

DRUGS (2)
  1. BACLOFEN [Suspect]
     Indication: SUICIDE ATTEMPT
     Dosage: UNKNOWN AMOUNT
     Route: 048
  2. LAMOTRIGINE [Suspect]
     Indication: SUICIDE ATTEMPT
     Dosage: INGESTED APPROXIMATELY 100-200 CAPSULES OF LAMOTRIGINE 100MG (TOTAL 10-20G)
     Route: 048

REACTIONS (16)
  - CONVULSION [None]
  - HYPONATRAEMIA [None]
  - RHABDOMYOLYSIS [None]
  - RESPIRATORY FAILURE [None]
  - CONDUCTION DISORDER [None]
  - VENTRICULAR TACHYCARDIA [None]
  - ATRIOVENTRICULAR BLOCK [None]
  - VENTRICULAR ARRHYTHMIA [None]
  - HYPOKALAEMIA [None]
  - VENTRICULAR FIBRILLATION [None]
  - TOXICITY TO VARIOUS AGENTS [None]
  - ARRHYTHMIA SUPRAVENTRICULAR [None]
  - ENCEPHALOPATHY [None]
  - LOSS OF CONSCIOUSNESS [None]
  - SUICIDE ATTEMPT [None]
  - PULSE ABSENT [None]
